FAERS Safety Report 9641640 (Version 3)
Quarter: 2015Q4

REPORT INFORMATION
  Report Type: Report from Study
  Country: US (occurrence: US)
  Receive Date: 20131023
  Receipt Date: 20151130
  Transmission Date: 20160305
  Serious: Yes (Hospitalization, Other)
  Sender: FDA-Public Use
  Company Number: US-VIIV HEALTHCARE LIMITED-B0933866A

PATIENT
  Age: 55 Year
  Sex: Male
  Weight: 73.6 kg

DRUGS (22)
  1. REMERON [Concomitant]
     Active Substance: MIRTAZAPINE
     Dates: start: 20080303
  2. POTASSIUM [Concomitant]
     Active Substance: POTASSIUM
     Dates: start: 20110101
  3. CALCIUM CARBONATE. [Concomitant]
     Active Substance: CALCIUM CARBONATE
     Dates: start: 20110210
  4. TESSALON [Concomitant]
     Active Substance: BENZONATATE
     Dates: start: 20121112
  5. RALTEGRAVIR. [Concomitant]
     Active Substance: RALTEGRAVIR
     Indication: HIV INFECTION
     Route: 048
  6. FIORICET [Concomitant]
     Active Substance: ACETAMINOPHEN\BUTALBITAL\CAFFEINE
     Dates: start: 20111003
  7. OMEPRAZOLE. [Concomitant]
     Active Substance: OMEPRAZOLE
     Dates: start: 20120824
  8. MELOXICAM. [Concomitant]
     Active Substance: MELOXICAM
     Dates: start: 20111228
  9. MARAVIROC [Suspect]
     Active Substance: MARAVIROC
     Indication: HIV INFECTION
     Route: 048
     Dates: start: 20110111
  10. PRAVACHOL [Concomitant]
     Active Substance: PRAVASTATIN SODIUM
     Dates: start: 20120329
  11. CIALIS [Concomitant]
     Active Substance: TADALAFIL
     Dates: start: 20110208
  12. AMITRIPTYLINE [Concomitant]
     Active Substance: AMITRIPTYLINE
     Dates: start: 20110208
  13. ACETAMINOPHEN. [Concomitant]
     Active Substance: ACETAMINOPHEN
     Dates: start: 20110210
  14. COMBIVENT [Concomitant]
     Active Substance: ALBUTEROL SULFATE\IPRATROPIUM BROMIDE
     Dates: start: 20130308
  15. LEVOTHYROXINE. [Concomitant]
     Active Substance: LEVOTHYROXINE
     Dates: start: 20101019
  16. DEPO-TESTOSTERONE [Concomitant]
     Active Substance: TESTOSTERONE CYPIONATE
     Dates: start: 20110208
  17. VITAMIN D [Concomitant]
     Active Substance: CHOLECALCIFEROL
     Dates: start: 20110221
  18. CLONIDINE. [Concomitant]
     Active Substance: CLONIDINE
     Dates: start: 20110208
  19. LIDODERM [Concomitant]
     Active Substance: LIDOCAINE
     Dates: start: 20110316
  20. LEXAPRO [Concomitant]
     Active Substance: ESCITALOPRAM OXALATE
     Dates: start: 20120824
  21. TUSSIONEX PENNKINETIC [Concomitant]
     Active Substance: CHLORPHENIRAMINE\HYDROCODONE
     Dates: start: 20121112
  22. LASIX [Concomitant]
     Active Substance: FUROSEMIDE
     Dates: start: 20130201

REACTIONS (1)
  - Acute myocardial infarction [Recovered/Resolved]

NARRATIVE: CASE EVENT DATE: 20131002
